FAERS Safety Report 5005062-9 (Version None)
Quarter: 2006Q2

REPORT INFORMATION
  Report Type: 
  Country: None (occurrence: None)
  Receive Date: 20060516
  Receipt Date: 20060516
  Transmission Date: 20061013
  Serious: Yes (Life-Threatening)
  Sender: FDA-Public Use
  Company Number: None

PATIENT
  Sex: Female
  Weight: 77 kg

DRUGS (5)
  1. CYCLOPHOSPHAMIDE [Suspect]
     Indication: BREAST CANCER
     Dosage: 1008 MG  Q 2 WKS  IV
     Route: 042
     Dates: start: 20060316
  2. CYCLOPHOSPHAMIDE [Suspect]
     Indication: BREAST CANCER
     Dosage: 1008 MG  Q 2 WKS  IV
     Route: 042
     Dates: start: 20060406
  3. DOXORUBICIN HYDROCHLORIDE [Suspect]
     Indication: BREAST CANCER
     Dosage: 100.8 MG   Q 2 WKS   IV
     Route: 042
     Dates: start: 20060316
  4. DOXORUBICIN HYDROCHLORIDE [Suspect]
     Indication: BREAST CANCER
     Dosage: 100.8 MG   Q 2 WKS   IV
     Route: 042
     Dates: start: 20060406
  5. AZULFIDINE [Concomitant]

REACTIONS (2)
  - PYREXIA [None]
  - WHITE BLOOD CELL COUNT ABNORMAL [None]
